FAERS Safety Report 9726588 (Version 1)
Quarter: 2013Q4

REPORT INFORMATION
  Report Type: Report from Study
  Country: GB (occurrence: GB)
  Receive Date: 20131203
  Receipt Date: 20131203
  Transmission Date: 20140711
  Serious: Yes (Hospitalization)
  Sender: FDA-Public Use
  Company Number: GB-GLAXOSMITHKLINE-B0947813A

PATIENT
  Sex: 0

DRUGS (1)
  1. PAZOPANIB [Suspect]
     Indication: RENAL CELL CARCINOMA
     Dates: end: 20120424

REACTIONS (10)
  - Nausea [Unknown]
  - Dyspepsia [Unknown]
  - Hiccups [Unknown]
  - Oral pain [Unknown]
  - Fatigue [Unknown]
  - Diarrhoea [Unknown]
  - Oral pain [Unknown]
  - Dehydration [Unknown]
  - Decreased appetite [Unknown]
  - Decubitus ulcer [Unknown]
